FAERS Safety Report 6872574-2 (Version None)
Quarter: 2010Q3

REPORT INFORMATION
  Report Type: 
  Country: None (occurrence: None)
  Receive Date: 20100721
  Receipt Date: 20100714
  Transmission Date: 20110219
  Serious: Yes (Other)
  Sender: FDA-Public Use
  Company Number: 2010SP038888

PATIENT
  Age: 51 Year
  Sex: Male

DRUGS (1)
  1. PEG-INTRON [Suspect]
     Indication: HEPATITIS C

REACTIONS (2)
  - BONE MARROW DISORDER [None]
  - HEPATIC FAILURE [None]
